FAERS Safety Report 4425399-1 (Version None)
Quarter: 2004Q3

REPORT INFORMATION
  Report Type: 
  Country: None (occurrence: None)
  Receive Date: 20040813
  Receipt Date: 20040628
  Transmission Date: 20050211
  Serious: Yes (Hospitalization)
  Sender: FDA-Public Use
  Company Number: SE-GLAXOSMITHKLINE-B0337902A

PATIENT
  Age: 11 Year
  Sex: Male

DRUGS (1)
  1. SERETIDE [Suspect]
     Route: 055
     Dates: start: 20030603, end: 20040201

REACTIONS (1)
  - COLITIS [None]
